FAERS Safety Report 4760359-2 (Version None)
Quarter: 2005Q3

REPORT INFORMATION
  Report Type: 
  Country: None (occurrence: None)
  Receive Date: 20050826
  Receipt Date: 20050511
  Transmission Date: 20060218
  Serious: No
  Sender: FDA-Public Use
  Company Number: 2005US002511

PATIENT
  Age: 60 Year
  Sex: Female

DRUGS (8)
  1. ALOXI [Suspect]
     Indication: PROPHYLAXIS OF NAUSEA AND VOMITING
     Dosage: 0.25 MG, SINGLE, IV BOLUS
     Route: 040
     Dates: start: 20050509, end: 20050509
  2. EMEND [Concomitant]
  3. DEXAMETHASONE [Concomitant]
  4. BENADRYL ^WARNER-LAMBERT^ (DIPHENHYDRAMINE HYDROCHLORIDE) [Concomitant]
  5. PEPCID [Concomitant]
  6. DEXTROSE INFUSION FLUID 5% (GLUCOSE) [Concomitant]
  7. OXALIPLATIN (OXALIPLATIN) [Concomitant]
  8. DOCETAXEL (DOCETAXEL) [Concomitant]

REACTIONS (2)
  - DRUG EFFECT DECREASED [None]
  - NAUSEA [None]
